FAERS Safety Report 4650717-9 (Version None)
Quarter: 2005Q2

REPORT INFORMATION
  Report Type: 
  Country: None (occurrence: None)
  Receive Date: 20050503
  Receipt Date: 20050420
  Transmission Date: 20051028
  Serious: Yes (Hospitalization)
  Sender: FDA-Public Use
  Company Number: US-BRISTOL-MYERS SQUIBB COMPANY-12940953

PATIENT
  Age: 48 Year
  Sex: Male
  Weight: 115 kg

DRUGS (12)
  1. ARIPIPRAZOLE [Suspect]
     Indication: METABOLIC SYNDROME
     Route: 048
     Dates: start: 20050308, end: 20050414
  2. ASPIRIN [Concomitant]
     Route: 048
  3. BUPROPION [Concomitant]
     Route: 048
  4. GLYBURIDE [Concomitant]
     Indication: DIABETES MELLITUS
     Route: 048
  5. HYDROCHLOROTHIAZIDE [Concomitant]
     Indication: BLOOD PRESSURE
     Route: 048
  6. IRBESARTAN [Concomitant]
     Route: 048
  7. LEVOTHYROXINE SODIUM [Concomitant]
     Indication: THYROID DISORDER
     Route: 048
  8. METFORMIN HCL [Concomitant]
     Indication: DIABETES MELLITUS
     Route: 048
  9. OLANZAPINE [Concomitant]
     Indication: NERVOUSNESS
     Route: 048
  10. RANITIDINE [Concomitant]
     Route: 048
  11. SIMVASTATIN [Concomitant]
     Indication: BLOOD CHOLESTEROL
     Route: 048
  12. TRIAMCINOLONE ACE OINTMENT [Concomitant]
     Route: 061

REACTIONS (1)
  - SCHIZOPHRENIA [None]
